FAERS Safety Report 21860466 (Version 1)
Quarter: 2023Q1

REPORT INFORMATION
  Report Type: Spontaneous
  Country: GB (occurrence: GB)
  Receive Date: 20230113
  Receipt Date: 20230113
  Transmission Date: 20230417
  Serious: Yes (Hospitalization)
  Sender: FDA-Public Use
  Company Number: GB-MYLANLABS-2022M1141551

PATIENT
  Age: 67 Year
  Sex: Male

DRUGS (1)
  1. LATANOPROST [Suspect]
     Active Substance: LATANOPROST
     Indication: Open angle glaucoma
     Dosage: UNK UNK, QD; 0.005% DROPS; ONCE DAILY IN BOTH THE EYES
     Route: 047

REACTIONS (3)
  - Ocular surface disease [Recovering/Resolving]
  - Intentional product misuse [Recovering/Resolving]
  - Treatment noncompliance [Recovering/Resolving]
